FAERS Safety Report 7426991-2 (Version None)
Quarter: 2011Q2

REPORT INFORMATION
  Report Type: 
  Country: None (occurrence: None)
  Receive Date: 20110420
  Receipt Date: 20110402
  Transmission Date: 20111010
  Serious: Yes (Hospitalization)
  Sender: FDA-Public Use
  Company Number: CN-SOLVAY-00211001721

PATIENT
  Age: 22341 Day
  Sex: Female
  Weight: 60 kg

DRUGS (1)
  1. ACERTIL 4MG [Suspect]
     Indication: HYPERTENSION
     Dosage: DAILY DOSE:  UNKNOWN
     Route: 065
     Dates: start: 20110123, end: 20110208

REACTIONS (1)
  - ANGINA UNSTABLE [None]
